FAERS Safety Report 8869754 (Version 1)
Quarter: 2012Q4

REPORT INFORMATION
  Report Type: Spontaneous
  Country: US (occurrence: None)
  Receive Date: 20121025
  Receipt Date: 20121025
  Transmission Date: 20130627
  Serious: Yes (Disabling)
  Sender: FDA-Public Use
  Company Number: None

PATIENT
  Age: 74 Year
  Sex: Male
  Weight: 88.45 kg

DRUGS (1)
  1. DIVALPROEX SODIUM [Suspect]
     Indication: BIPOLAR DISORDER
     Dosage: 2000mg daily po
     Route: 048
     Dates: start: 19940718, end: 20120530

REACTIONS (3)
  - Cognitive disorder [None]
  - Musculoskeletal disorder [None]
  - Gait disturbance [None]
